FAERS Safety Report 10044451 (Version 1)
Quarter: 2014Q1

REPORT INFORMATION
  Report Type: Spontaneous
  Country: US (occurrence: US)
  Receive Date: 20140328
  Receipt Date: 20140328
  Transmission Date: 20141002
  Serious: Yes (Hospitalization, Other)
  Sender: FDA-Public Use
  Company Number: US-PFIZER INC-2014087145

PATIENT
  Age: 50 Year
  Sex: Female

DRUGS (1)
  1. SUNITINIB MALATE [Suspect]
     Indication: PANCREATIC CARCINOMA
     Dosage: 50 MG, UNK
     Dates: start: 20110404

REACTIONS (1)
  - Brain injury [Unknown]
